FAERS Safety Report 13363067 (Version 2)
Quarter: 2017Q2

REPORT INFORMATION
  Report Type: Report from Study
  Country: US (occurrence: US)
  Receive Date: 20170323
  Receipt Date: 20170516
  Transmission Date: 20170830
  Serious: No
  Sender: FDA-Public Use
  Company Number: US-009507513-1703USA004556

PATIENT
  Sex: Female
  Weight: 129.25 kg

DRUGS (2)
  1. IMPLANON [Suspect]
     Active Substance: ETONOGESTREL
     Dosage: 1 DF, UNK (STRENGTH: 68 MG)
     Route: 059
     Dates: start: 20170307
  2. IMPLANON [Suspect]
     Active Substance: ETONOGESTREL
     Indication: CONTRACEPTION
     Dosage: 1 DF, UNK (STRENGTH: 68 MG)
     Route: 059
     Dates: start: 20170223, end: 20170307

REACTIONS (3)
  - Implant site fibrosis [Unknown]
  - Implant site pain [Recovered/Resolved]
  - Complication associated with device [Recovered/Resolved]

NARRATIVE: CASE EVENT DATE: 2017
